FAERS Safety Report 17128511 (Version 2)
Quarter: 2019Q4

REPORT INFORMATION
  Report Type: Report from Study
  Country: JP (occurrence: JP)
  Receive Date: 20191209
  Receipt Date: 20191227
  Transmission Date: 20200122
  Serious: Yes (Other)
  Sender: FDA-Public Use
  Company Number: NVSJ2019JP004814

PATIENT
  Age: 38 Year
  Sex: Male

DRUGS (14)
  1. REVOLADE TAB [Suspect]
     Active Substance: ELTROMBOPAG
     Dosage: 25 MG,UNK
     Route: 048
     Dates: start: 20181122, end: 20181128
  2. PLATELETS [Concomitant]
     Active Substance: HUMAN PLATELET, ALLOGENIC
     Indication: PRODUCT USED FOR UNKNOWN INDICATION
     Dosage: 1200 ML,6 TIMES A MONTH
     Route: 042
     Dates: start: 20180910, end: 20181007
  3. CONCENTRATED RED CELLS [Concomitant]
     Active Substance: HUMAN RED BLOOD CELL
     Dosage: 200 UNK,ONCE A MONTH
     Route: 042
     Dates: start: 20181008, end: 20181104
  4. NEORAL [Suspect]
     Active Substance: CYCLOSPORINE
     Dosage: 250 MG
     Route: 048
     Dates: start: 20181019, end: 20181023
  5. NEORAL [Suspect]
     Active Substance: CYCLOSPORINE
     Dosage: 200 MG
     Route: 048
     Dates: start: 20181024, end: 20181028
  6. CONCENTRATED RED CELLS [Concomitant]
     Active Substance: HUMAN RED BLOOD CELL
     Indication: PRODUCT USED FOR UNKNOWN INDICATION
     Dosage: 1200 ML,6 TIMES A MONTH
     Route: 042
     Dates: start: 20180910, end: 20181007
  7. NEORAL [Suspect]
     Active Substance: CYCLOSPORINE
     Indication: APLASTIC ANAEMIA
     Dosage: 350 MG,UNK
     Route: 048
     Dates: start: 20180910, end: 20181014
  8. NEORAL [Suspect]
     Active Substance: CYCLOSPORINE
     Dosage: 150 MG
     Route: 048
     Dates: start: 20181029, end: 20181121
  9. REVOLADE TAB [Suspect]
     Active Substance: ELTROMBOPAG
     Dosage: 50 MG
     Route: 048
     Dates: start: 20181115, end: 20181121
  10. THYMOGLOBULINE [Concomitant]
     Active Substance: LAPINE T-LYMPHOCYTE IMMUNE GLOBULIN
     Indication: APLASTIC ANAEMIA
     Dosage: 260 MG,UNK
     Route: 065
     Dates: start: 20180910, end: 20180914
  11. REVOLADE TAB [Suspect]
     Active Substance: ELTROMBOPAG
     Indication: APLASTIC ANAEMIA
     Dosage: 75 MG,UNK
     Route: 048
     Dates: start: 20180910, end: 20181114
  12. NEORAL [Suspect]
     Active Substance: CYCLOSPORINE
     Dosage: 250 MG,UNK
     Route: 048
     Dates: start: 20181122
  13. NEORAL [Suspect]
     Active Substance: CYCLOSPORINE
     Dosage: 300 MG
     Route: 048
     Dates: start: 20181015, end: 20181018
  14. NEUTROGIN [Concomitant]
     Active Substance: LENOGRASTIM
     Indication: APLASTIC ANAEMIA
     Dosage: 250 UG
     Route: 065
     Dates: start: 20180912, end: 20180926

REACTIONS (2)
  - White blood cell count decreased [Unknown]
  - Blood creatinine increased [Recovered/Resolved]

NARRATIVE: CASE EVENT DATE: 20181010
